FAERS Safety Report 6211391-3 (Version None)
Quarter: 2009Q2

REPORT INFORMATION
  Report Type: 
  Country: None (occurrence: None)
  Receive Date: 20090522
  Receipt Date: 20090302
  Transmission Date: 20091009
  Serious: No
  Sender: FDA-Public Use
  Company Number: 8039928

PATIENT
  Age: 56 Year
  Sex: Female
  Weight: 49.8 kg

DRUGS (11)
  1. CIMZIA [Suspect]
     Indication: CROHN'S DISEASE
     Dosage: 400 MG SC
     Route: 058
     Dates: start: 20081117
  2. ADVAIR HFA [Concomitant]
  3. ESTRADIOL [Concomitant]
  4. FOLIC ACID [Concomitant]
  5. POTASSIUM CHLORIDE [Concomitant]
  6. VERAPAMIL [Concomitant]
  7. VITAMIN B-12 [Concomitant]
  8. ZITHROMAX [Concomitant]
  9. TRAMADOL HCL [Concomitant]
  10. LISINOPRIL [Concomitant]
  11. DIAZEPAM [Concomitant]

REACTIONS (5)
  - ABDOMINAL DISCOMFORT [None]
  - ABDOMINAL PAIN [None]
  - DIARRHOEA [None]
  - HEADACHE [None]
  - SINUSITIS [None]
